FAERS Safety Report 10038601 (Version 1)
Quarter: 2014Q1

REPORT INFORMATION
  Report Type: Spontaneous
  Country: US (occurrence: None)
  Receive Date: 20140306
  Receipt Date: 20140306
  Transmission Date: 20141002
  Serious: Yes (Hospitalization)
  Sender: FDA-Public Use
  Company Number: 163-21880-13073502

PATIENT
  Age: 91 Year
  Sex: Male
  Weight: 72.58 kg

DRUGS (17)
  1. REVLIMID (LENALIDOMIDE) (10 MILLIGRAM, CAPSULES) [Suspect]
     Indication: MYELODYSPLASTIC SYNDROME
     Dosage: 1 IN 1 D
     Route: 048
     Dates: start: 20130424
  2. ATARAX (HYDROXYZINE HYDROCHLORIDE) [Concomitant]
  3. BACTRIM [Concomitant]
  4. BENADRYL (CLONALIN) [Concomitant]
  5. CLARITIN (LORATADINE) [Concomitant]
  6. COLACE (DOCUSATE SODIUM) [Concomitant]
  7. DUONEB (COMBIVENT) [Concomitant]
  8. FERROUS GLUCONATE (FERROUS GLUCONATE) [Concomitant]
  9. FOLIC ACID [Concomitant]
  10. FUROSEMIDE [Concomitant]
  11. HYDRALAZINE [Concomitant]
  12. LEVEMIR (INSULIN DETEMIR) [Concomitant]
  13. MUCINEX (GUAIFENESIN) [Concomitant]
  14. NOVOLOG (INSULIN ASPART) [Concomitant]
  15. OMEPRAZOLE [Concomitant]
  16. VALSARTAN/ HCTZ (CO-DIOVAN) [Concomitant]
  17. WARFARIN [Concomitant]

REACTIONS (3)
  - Arthritis infective [None]
  - Arthropathy [None]
  - Arthralgia [None]
